FAERS Safety Report 8068573 (Version 7)
Quarter: 2018Q4

REPORT INFORMATION
  Report Type: Report from Study
  Country: JP (occurrence: JP)
  Receive Date: 20110804
  Receipt Date: 20181029
  Transmission Date: 20190205
  Serious: Yes (Life-Threatening, Other)
  Sender: FDA-Public Use
  Company Number: JP-ASTELLAS-2011JP001992

PATIENT
  Age: 34 Year
  Sex: Female
  Weight: 45 kg

DRUGS (41)
  1. MEILAX [Concomitant]
     Active Substance: ETHYL LOFLAZEPATE
     Indication: INSOMNIA
     Route: 048
     Dates: end: 20090205
  2. FLOMOX [Concomitant]
     Active Substance: CEFCAPENE PIVOXIL HYDROCHLORIDE HYDRATE
     Indication: GASTROENTERITIS
     Route: 065
     Dates: start: 2009
  3. FLOMOX [Concomitant]
     Active Substance: CEFCAPENE PIVOXIL HYDROCHLORIDE HYDRATE
     Indication: PHARYNGITIS
     Route: 065
     Dates: start: 2009
  4. FLOMOX [Concomitant]
     Active Substance: CEFCAPENE PIVOXIL HYDROCHLORIDE HYDRATE
     Indication: OROPHARYNGEAL PAIN
     Route: 065
     Dates: start: 2009
  5. FLOMOX [Concomitant]
     Active Substance: CEFCAPENE PIVOXIL HYDROCHLORIDE HYDRATE
     Route: 065
     Dates: start: 2010
  6. MEIACT [Concomitant]
     Active Substance: CEFDITOREN PIVOXIL
     Indication: CALCULUS URINARY
     Route: 065
  7. MEIACT [Concomitant]
     Active Substance: CEFDITOREN PIVOXIL
     Indication: HYDRONEPHROSIS
  8. METHYLPREDNISOLONE. [Suspect]
     Active Substance: METHYLPREDNISOLONE
     Route: 048
     Dates: start: 20100729, end: 20110520
  9. BONALON [Concomitant]
     Active Substance: ALENDRONATE SODIUM
     Indication: OSTEOPOROSIS
     Route: 048
  10. THIATON [Concomitant]
     Active Substance: TIQUIZIUM BROMIDE
     Indication: CALCULUS URINARY
     Route: 065
     Dates: start: 2009, end: 20090913
  11. METHYLPREDNISOLONE. [Suspect]
     Active Substance: METHYLPREDNISOLONE
     Route: 048
     Dates: start: 20080723, end: 20100210
  12. UROCALUN [Concomitant]
     Active Substance: QUERCUS SALICINA STEM
     Indication: HYDRONEPHROSIS
  13. METHYLPREDNISOLONE. [Suspect]
     Active Substance: METHYLPREDNISOLONE
     Dosage: 20 MG PER 4 DAYS
     Route: 048
     Dates: start: 20100211, end: 20100623
  14. METHYLPREDNISOLONE. [Suspect]
     Active Substance: METHYLPREDNISOLONE
     Route: 048
     Dates: start: 20110521, end: 20150724
  15. FLOMOX [Concomitant]
     Active Substance: CEFCAPENE PIVOXIL HYDROCHLORIDE HYDRATE
     Indication: NASOPHARYNGITIS
     Route: 065
  16. FLOMOX [Concomitant]
     Active Substance: CEFCAPENE PIVOXIL HYDROCHLORIDE HYDRATE
     Route: 065
     Dates: start: 2010
  17. CHLOMY [Concomitant]
     Active Substance: CHLORAMPHENICOL
     Indication: BACTERIAL VULVOVAGINITIS
     Route: 067
     Dates: start: 2009
  18. TACROLIMUS. [Suspect]
     Active Substance: TACROLIMUS
     Route: 048
     Dates: start: 20081126
  19. METHYLPREDNISOLONE. [Suspect]
     Active Substance: METHYLPREDNISOLONE
     Route: 048
     Dates: start: 20100624, end: 20100728
  20. ALFAROL [Concomitant]
     Active Substance: ALFACALCIDOL
     Indication: HYPOTHYROIDISM
     Dosage: 0.25 ?G, ONCE DAILY
     Route: 048
  21. VOLTAREN [Concomitant]
     Active Substance: DICLOFENAC SODIUM
     Indication: UPPER RESPIRATORY TRACT INFLAMMATION
     Dosage: UNK UNK, UNKNOWN FREQ.
     Route: 065
     Dates: start: 2009
  22. METHYLPREDNISOLONE. [Suspect]
     Active Substance: METHYLPREDNISOLONE
     Indication: LUPUS NEPHRITIS
     Route: 048
     Dates: end: 20080722
  23. MEILAX [Concomitant]
     Active Substance: ETHYL LOFLAZEPATE
     Route: 048
     Dates: start: 20090206, end: 20120413
  24. BONALON [Concomitant]
     Active Substance: ALENDRONATE SODIUM
     Indication: OSTEOPOROSIS
     Route: 048
  25. COSPANON [Concomitant]
     Active Substance: FLOPROPIONE
     Indication: HYDRONEPHROSIS
  26. TACROLIMUS. [Suspect]
     Active Substance: TACROLIMUS
     Indication: LUPUS NEPHRITIS
     Route: 048
     Dates: start: 20080116, end: 20081125
  27. METHYLPREDNISOLONE. [Suspect]
     Active Substance: METHYLPREDNISOLONE
     Route: 048
     Dates: start: 20150725, end: 20160519
  28. MYSLEE [Concomitant]
     Active Substance: ZOLPIDEM TARTRATE
     Indication: INSOMNIA
     Route: 048
  29. MYSLEE [Concomitant]
     Active Substance: ZOLPIDEM TARTRATE
     Route: 048
  30. FLOMOX [Concomitant]
     Active Substance: CEFCAPENE PIVOXIL HYDROCHLORIDE HYDRATE
     Indication: UPPER RESPIRATORY TRACT INFLAMMATION
     Route: 065
     Dates: start: 2008
  31. COSPANON [Concomitant]
     Active Substance: FLOPROPIONE
     Indication: CALCULUS URINARY
     Route: 065
     Dates: start: 2009
  32. ASVERIN (TIPEPIDINE HIBENZATE) [Concomitant]
     Active Substance: TIPEPIDINE HIBENZATE
     Indication: UPPER RESPIRATORY TRACT INFLAMMATION
     Route: 065
  33. METHYLPREDNISOLONE. [Suspect]
     Active Substance: METHYLPREDNISOLONE
     Dosage: 16 MG PER 4 DAYS
     Route: 048
     Dates: start: 20160520
  34. THYRADIN S [Concomitant]
     Active Substance: LEVOTHYROXINE SODIUM
     Indication: HYPOTHYROIDISM
     Route: 048
  35. ULGUT [Concomitant]
     Indication: PROPHYLAXIS
     Route: 048
  36. BAYASPIRIN [Concomitant]
     Active Substance: ASPIRIN
     Indication: PROPHYLAXIS
     Route: 048
  37. GASTER [Concomitant]
     Active Substance: FAMOTIDINE
     Indication: PROPHYLAXIS
     Route: 048
  38. THIATON [Concomitant]
     Active Substance: TIQUIZIUM BROMIDE
     Indication: HYDRONEPHROSIS
  39. UROCALUN [Concomitant]
     Active Substance: QUERCUS SALICINA STEM
     Indication: CALCULUS URINARY
     Route: 065
     Dates: start: 2009, end: 20090913
  40. HYPEN                              /00613801/ [Concomitant]
     Active Substance: ETODOLAC
     Indication: UPPER RESPIRATORY TRACT INFLAMMATION
     Dosage: UNK UNK, UNKNOWN FREQ.
     Route: 065
     Dates: start: 2009
  41. MUCOSOLVAN [Concomitant]
     Active Substance: AMBROXOL HYDROCHLORIDE
     Indication: UPPER RESPIRATORY TRACT INFLAMMATION
     Route: 065

REACTIONS (10)
  - Upper respiratory tract infection [Recovering/Resolving]
  - Bacterial vulvovaginitis [Recovering/Resolving]
  - Calculus urinary [Recovering/Resolving]
  - Urachal abscess [Recovering/Resolving]
  - Pharyngitis [Recovering/Resolving]
  - Gastroenteritis [Recovering/Resolving]
  - Hydronephrosis [Recovering/Resolving]
  - Nasopharyngitis [Recovering/Resolving]
  - Pharyngitis [Recovering/Resolving]
  - Iron deficiency anaemia [Recovering/Resolving]

NARRATIVE: CASE EVENT DATE: 20081029
